FAERS Safety Report 17761247 (Version 3)
Quarter: 2020Q2

REPORT INFORMATION
  Report Type: Report from Study
  Country: ES (occurrence: ES)
  Receive Date: 20200508
  Receipt Date: 20200520
  Transmission Date: 20200714
  Serious: Yes (Other)
  Sender: FDA-Public Use
  Company Number: ES-GLAXOSMITHKLINE-ES2020GSK075494

PATIENT
  Age: 72 Year
  Sex: Female
  Weight: 71 kg

DRUGS (9)
  1. BLINDED NIRAPARIB [Suspect]
     Active Substance: NIRAPARIB
     Dosage: 1200 MG
     Route: 042
     Dates: start: 20190322, end: 20190322
  2. BLINDED DOXORUBICIN [Suspect]
     Active Substance: DOXORUBICIN
     Indication: OVARIAN EPITHELIAL CANCER
     Dosage: 1200 MG
     Route: 042
     Dates: start: 20190321, end: 20190321
  3. BLINDED NIRAPARIB [Suspect]
     Active Substance: NIRAPARIB
     Indication: OVARIAN EPITHELIAL CANCER
     Dosage: 1200 MG
     Route: 042
     Dates: start: 20190321, end: 20190321
  4. BLINDED DOXORUBICIN [Suspect]
     Active Substance: DOXORUBICIN
     Dosage: 1200 MG
     Route: 042
     Dates: start: 20190322, end: 20190322
  5. PLACEBO [Suspect]
     Active Substance: UNSPECIFIED INGREDIENT
     Dosage: 1200 MG
     Route: 042
     Dates: start: 20190322, end: 20190322
  6. NIRAPARIB [Suspect]
     Active Substance: NIRAPARIB
     Indication: OVARIAN EPITHELIAL CANCER
     Dosage: 100 MG, QD
     Route: 048
     Dates: start: 20191009, end: 20200211
  7. PLACEBO [Suspect]
     Active Substance: UNSPECIFIED INGREDIENT
     Indication: OVARIAN EPITHELIAL CANCER
     Dosage: 1200 MG
     Route: 042
     Dates: start: 20190321, end: 20190321
  8. BLINDED ATEZOLIZUMAB [Suspect]
     Active Substance: ATEZOLIZUMAB
     Dosage: 1200 MG
     Route: 042
     Dates: start: 20190322, end: 20190322
  9. BLINDED ATEZOLIZUMAB [Suspect]
     Active Substance: ATEZOLIZUMAB
     Indication: OVARIAN EPITHELIAL CANCER
     Dosage: 1200 MG
     Route: 042
     Dates: start: 20190321, end: 20190321

REACTIONS (1)
  - Hypothyroidism [Recovered/Resolved]

NARRATIVE: CASE EVENT DATE: 20190724
